FAERS Safety Report 5820172-1 (Version None)
Quarter: 2008Q3

REPORT INFORMATION
  Report Type: 
  Country: None (occurrence: None)
  Receive Date: 20080724
  Receipt Date: 20080716
  Transmission Date: 20090109
  Serious: Yes (Other)
  Sender: FDA-Public Use
  Company Number: PHEH2008US06521

PATIENT

DRUGS (2)
  1. DIOVAN [Suspect]
     Dosage: UNK
     Dates: start: 20061101
  2. DIOVAN HCT [Suspect]

REACTIONS (1)
  - LIVER DISORDER [None]
